FAERS Safety Report 15724993 (Version 1)
Quarter: 2018Q4

REPORT INFORMATION
  Report Type: Spontaneous
  Country: MM (occurrence: MM)
  Receive Date: 20181214
  Receipt Date: 20181214
  Transmission Date: 20190205
  Serious: Yes (Other)
  Sender: FDA-Public Use
  Company Number: PHHY2018MM183028

PATIENT
  Age: 71 Year
  Sex: Male
  Weight: 56.3 kg

DRUGS (8)
  1. CLOFAZIMINE [Suspect]
     Active Substance: CLOFAZIMINE
     Indication: PRODUCT USED FOR UNKNOWN INDICATION
     Dosage: 100 MG, QD
     Route: 065
     Dates: start: 20171212
  2. LEVOFLOXACIN SANDOZ [Suspect]
     Active Substance: LEVOFLOXACIN
     Indication: PRODUCT USED FOR UNKNOWN INDICATION
     Dosage: 200 MG, QD
     Route: 048
     Dates: start: 20170821
  3. RIFAMPICIN [Suspect]
     Active Substance: RIFAMPIN
     Indication: TUBERCULOSIS
     Dosage: UNK
     Route: 065
  4. LEVOTHYROXINE. [Concomitant]
     Active Substance: LEVOTHYROXINE
     Indication: PRODUCT USED FOR UNKNOWN INDICATION
     Dosage: UNK
     Dates: start: 20180703
  5. DELAMANID [Suspect]
     Active Substance: DELAMANID
     Indication: PRODUCT USED FOR UNKNOWN INDICATION
     Dosage: 750 MG, TID
     Route: 048
  6. ETHIONAMIDE [Suspect]
     Active Substance: ETHIONAMIDE
     Indication: PRODUCT USED FOR UNKNOWN INDICATION
     Route: 065
  7. CYCLOSERINE. [Suspect]
     Active Substance: CYCLOSERINE
     Indication: PRODUCT USED FOR UNKNOWN INDICATION
     Dosage: 500 MG, QD
     Route: 048
     Dates: start: 20170821
  8. PYRAZINAMIDE. [Suspect]
     Active Substance: PYRAZINAMIDE
     Indication: PRODUCT USED FOR UNKNOWN INDICATION
     Dosage: 1250 MG, TIW
     Route: 048
     Dates: start: 20170821

REACTIONS (4)
  - Sleep disorder [Unknown]
  - Abnormal behaviour [Unknown]
  - Amnesia [Unknown]
  - Mental disorder [Unknown]

NARRATIVE: CASE EVENT DATE: 20180906
